FAERS Safety Report 17218436 (Version 1)
Quarter: 2019Q4

REPORT INFORMATION
  Report Type: Spontaneous
  Country: US (occurrence: US)
  Receive Date: 20191231
  Receipt Date: 20191231
  Transmission Date: 20200122
  Serious: Yes (Other)
  Sender: FDA-Public Use
  Company Number: US-SA-2019SA358041

PATIENT
  Age: 87 Year
  Sex: Male

DRUGS (1)
  1. AMBIEN [Suspect]
     Active Substance: ZOLPIDEM TARTRATE
     Indication: DYSPNOEA
     Dosage: 5 MG, HS
     Route: 065
     Dates: start: 201911

REACTIONS (7)
  - Fatigue [Unknown]
  - Pulmonary oedema [Unknown]
  - Insomnia [Unknown]
  - Product use in unapproved indication [Unknown]
  - Therapeutic response decreased [Unknown]
  - Restlessness [Unknown]
  - Aortic valve incompetence [Unknown]
